FAERS Safety Report 10354141 (Version 3)
Quarter: 2014Q3

REPORT INFORMATION
  Report Type: Spontaneous
  Country: US (occurrence: US)
  Receive Date: 20140731
  Receipt Date: 20140812
  Transmission Date: 20150326
  Serious: Yes (Other)
  Sender: FDA-Public Use
  Company Number: US-AMGEN-USASP2014027947

PATIENT
  Age: 37 Year
  Sex: Female
  Weight: 83.9 kg

DRUGS (1)
  1. ENBREL [Suspect]
     Active Substance: ETANERCEPT
     Indication: RHEUMATOID ARTHRITIS
     Dosage: 50 ML, QWK
     Route: 058
     Dates: start: 200910

REACTIONS (2)
  - Forceps delivery [Unknown]
  - Sinusitis [Unknown]

NARRATIVE: CASE EVENT DATE: 20140603
